FAERS Safety Report 9717437 (Version 1)
Quarter: 2013Q4

REPORT INFORMATION
  Report Type: Spontaneous
  Country: US (occurrence: US)
  Receive Date: 20131127
  Receipt Date: 20131127
  Transmission Date: 20140711
  Serious: No
  Sender: FDA-Public Use
  Company Number: US-GILEAD-2008-0019670

PATIENT
  Sex: Female

DRUGS (9)
  1. LETAIRIS [Suspect]
     Indication: PULMONARY ARTERIAL HYPERTENSION
     Route: 048
     Dates: start: 20081014, end: 20081223
  2. VENTAVIS [Concomitant]
  3. GLUCOSE [Concomitant]
  4. IRON [Concomitant]
  5. RED YEAST RICE [Concomitant]
  6. ALLEGRA-D [Concomitant]
  7. TENORMIN [Concomitant]
  8. HYZAAR [Concomitant]
  9. RHINOCORT AQUA [Concomitant]

REACTIONS (1)
  - Local swelling [Unknown]
